FAERS Safety Report 6836885-9 (Version None)
Quarter: 2010Q3

REPORT INFORMATION
  Report Type: 
  Country: None (occurrence: None)
  Receive Date: 20100713
  Receipt Date: 20070426
  Transmission Date: 20110219
  Serious: No
  Sender: FDA-Public Use
  Company Number: US-PFIZER INC-2007035035

PATIENT
  Sex: Female
  Weight: 44.545 kg

DRUGS (2)
  1. CHANTIX [Suspect]
     Indication: SMOKING CESSATION THERAPY
     Dates: start: 20070401
  2. CLONAZEPAM [Concomitant]

REACTIONS (5)
  - ASTHENIA [None]
  - CRYING [None]
  - DEPRESSED MOOD [None]
  - HYPOAESTHESIA [None]
  - MENTAL IMPAIRMENT [None]
